FAERS Safety Report 9162457 (Version 1)
Quarter: 2013Q1

REPORT INFORMATION
  Report Type: Spontaneous
  Country: JP (occurrence: JP)
  Receive Date: 20130314
  Receipt Date: 20130314
  Transmission Date: 20140127
  Serious: Yes (Hospitalization)
  Sender: FDA-Public Use
  Company Number: JP-VERTEX PHARMACEUTICALS INC.-2013-003409

PATIENT
  Age: 64 Year
  Sex: Male

DRUGS (5)
  1. TELAVIC [Suspect]
     Indication: CHRONIC HEPATITIS C
     Dosage: 1500 MG, QD
     Route: 048
     Dates: start: 20130208, end: 20130225
  2. RIBAVIRIN [Concomitant]
     Dosage: 600 MG, QD
     Route: 048
     Dates: start: 20130208, end: 20130225
  3. PEGINTERFERON ALFA-2B [Concomitant]
     Dosage: 80 ?G, WEEKLY
     Route: 058
     Dates: start: 20130208, end: 20130215
  4. GLYCYRON [Concomitant]
     Dosage: 6 DF, UNK
     Route: 048
  5. URSO [Concomitant]
     Dosage: 300 MG, QD
     Route: 048

REACTIONS (3)
  - Urinary tract infection [Recovered/Resolved]
  - Insomnia [Not Recovered/Not Resolved]
  - Hyperuricaemia [Recovered/Resolved]
